FAERS Safety Report 7124279-0 (Version None)
Quarter: 2010Q4

REPORT INFORMATION
  Report Type: 
  Country: None (occurrence: None)
  Receive Date: 20101126
  Receipt Date: 20101115
  Transmission Date: 20110411
  Serious: Yes (Hospitalization)
  Sender: FDA-Public Use
  Company Number: PHHY2010US77766

PATIENT
  Sex: Female

DRUGS (7)
  1. GLEEVEC [Suspect]
     Dosage: 400 MG, UNK
  2. DIOVAN [Concomitant]
     Dosage: 80 MG, UNK
  3. ATENOLOL [Concomitant]
     Dosage: 25 MG, UNK
  4. DYAZIDE [Concomitant]
  5. LEVOTHYROXINE SODIUM [Concomitant]
  6. GABAPENTIN [Concomitant]
  7. OMEPRAZOLE [Concomitant]

REACTIONS (5)
  - CARDIAC VALVE DISEASE [None]
  - DEHYDRATION [None]
  - DIARRHOEA [None]
  - OEDEMA PERIPHERAL [None]
  - SYNCOPE [None]
